FAERS Safety Report 5574380-8 (Version None)
Quarter: 2007Q4

REPORT INFORMATION
  Report Type: 
  Country: None (occurrence: None)
  Receive Date: 20071227
  Receipt Date: 20071217
  Transmission Date: 20080405
  Serious: Yes (Other)
  Sender: FDA-Public Use
  Company Number: DE-JNJFOC-20071204968

PATIENT
  Sex: Male

DRUGS (6)
  1. VERMOX [Suspect]
     Indication: SUICIDAL IDEATION
     Route: 048
  2. AMITRIPTYLINE HCL [Suspect]
     Indication: SUICIDAL IDEATION
     Route: 048
  3. DURADIURET [Suspect]
     Indication: SUICIDAL IDEATION
     Route: 048
  4. LAMOTRIGINE [Suspect]
     Indication: SUICIDAL IDEATION
     Route: 048
  5. ACETAMINOPHEN [Suspect]
     Indication: SUICIDAL IDEATION
     Route: 048
  6. ALCOHOL [Suspect]
     Indication: SUICIDAL IDEATION
     Route: 048

REACTIONS (3)
  - INTENTIONAL OVERDOSE [None]
  - SUICIDE ATTEMPT [None]
  - VOMITING [None]
